FAERS Safety Report 6193170-9 (Version None)
Quarter: 2009Q2

REPORT INFORMATION
  Report Type: 
  Country: None (occurrence: None)
  Receive Date: 20090518
  Receipt Date: 20090508
  Transmission Date: 20091009
  Serious: Yes (Death)
  Sender: FDA-Public Use
  Company Number: A0719241A

PATIENT
  Age: 51 Year
  Sex: Female
  Weight: 104.5 kg

DRUGS (8)
  1. AVANDIA [Suspect]
     Route: 048
     Dates: start: 20000701, end: 20050901
  2. AMARYL [Concomitant]
  3. GLYBURIDE [Concomitant]
  4. VIOXX [Concomitant]
  5. CELEBREX [Concomitant]
  6. ZYPREXA [Concomitant]
  7. DOXEPIN HCL [Concomitant]
  8. FLUOXETINE HCL [Concomitant]

REACTIONS (3)
  - DEATH [None]
  - MYOCARDIAL INFARCTION [None]
  - TRANSIENT ISCHAEMIC ATTACK [None]
